FAERS Safety Report 17990792 (Version 1)
Quarter: 2020Q3

REPORT INFORMATION
  Report Type: Spontaneous
  Country: FR (occurrence: FR)
  Receive Date: 20200707
  Receipt Date: 20200707
  Transmission Date: 20201103
  Serious: Yes (Hospitalization, Other)
  Sender: FDA-Public Use
  Company Number: NVSC2020FR190686

PATIENT
  Age: 42 Year
  Sex: Female
  Weight: 74 kg

DRUGS (9)
  1. BRILIQUE [Concomitant]
     Active Substance: TICAGRELOR
     Indication: PLATELET AGGREGATION INHIBITION
     Dosage: 180 MG, QD
     Route: 048
  2. LOXAPAC [Concomitant]
     Active Substance: LOXAPINE
     Indication: SEDATION
     Dosage: 75 MG, QD
     Route: 048
     Dates: start: 20200410
  3. PANTOPRAZOLE [Concomitant]
     Active Substance: PANTOPRAZOLE
     Indication: PRODUCT USED FOR UNKNOWN INDICATION
     Dosage: 20 MG, QD
     Route: 048
  4. ZYPADHERA [Suspect]
     Active Substance: OLANZAPINE PAMOATE
     Indication: MANIA
     Dosage: 300 MG
     Route: 030
     Dates: start: 20200511
  5. BISOPROLOL FUMARATE. [Concomitant]
     Active Substance: BISOPROLOL FUMARATE
     Indication: HYPERTENSION
     Dosage: 1.25 MG, QD
     Route: 048
     Dates: start: 20200515
  6. ATORVASTATINE [Concomitant]
     Active Substance: ATORVASTATIN
     Indication: HYPERCHOLESTEROLAEMIA
     Dosage: 40 MG, QD
     Route: 048
  7. OLANZAPINE. [Suspect]
     Active Substance: OLANZAPINE
     Indication: SCHIZOAFFECTIVE DISORDER
     Dosage: 15 MG, QD
     Route: 048
     Dates: start: 20200410, end: 20200511
  8. RAMIPRIL. [Concomitant]
     Active Substance: RAMIPRIL
     Indication: PRODUCT USED FOR UNKNOWN INDICATION
     Dosage: 1.25 MG, QD
     Route: 048
  9. TRANXENE [Concomitant]
     Active Substance: CLORAZEPATE DIPOTASSIUM
     Indication: SEDATIVE THERAPY
     Dosage: 30 MG, QD
     Route: 048

REACTIONS (1)
  - Chest pain [Recovered/Resolved]

NARRATIVE: CASE EVENT DATE: 20200514
